FAERS Safety Report 4949249-X (Version None)
Quarter: 2006Q1

REPORT INFORMATION
  Report Type: 
  Country: None (occurrence: None)
  Receive Date: 20060321
  Receipt Date: 20030709
  Transmission Date: 20060701
  Serious: Yes (Life-Threatening)
  Sender: FDA-Public Use
  Company Number: PHBS2003JP07232

PATIENT
  Age: 16 Year
  Sex: Female
  Weight: 46.35 kg

DRUGS (10)
  1. DIART [Concomitant]
     Dosage: 60 MG/DAY
     Route: 048
     Dates: start: 20030401, end: 20030618
  2. ALDACTONE [Concomitant]
     Dosage: 50 MG/DAY
     Route: 048
     Dates: start: 20030410, end: 20030618
  3. ASPIRIN [Concomitant]
     Dosage: 100 MGDAY
     Route: 048
     Dates: start: 20030428, end: 20030618
  4. ZANTAC [Concomitant]
     Dosage: 150 MG/D
     Route: 048
     Dates: start: 20030408, end: 20030618
  5. EPADEL [Concomitant]
     Dosage: 1.8 G/D
     Route: 048
     Dates: start: 20030521, end: 20030618
  6. LASIX [Concomitant]
     Dosage: 240 MG/D
     Route: 048
     Dates: start: 20030408, end: 20030618
  7. PREDNISOLONE [Concomitant]
     Dosage: 20 MG/D
     Route: 048
     Dates: start: 20021218, end: 20030714
  8. NU LOTAN [Concomitant]
     Dosage: 25 MG/D
     Route: 048
     Dates: start: 20030501, end: 20030618
  9. WARFARIN [Concomitant]
     Dosage: 1 MG/D
     Route: 048
     Dates: start: 20030612, end: 20030618
  10. NEORAL [Suspect]
     Indication: NEPHROTIC SYNDROME
     Dosage: 75 MG/DAY
     Route: 048
     Dates: start: 20030413, end: 20030618

REACTIONS (19)
  - BRAIN OEDEMA [None]
  - DEPRESSED LEVEL OF CONSCIOUSNESS [None]
  - DISSEMINATED INTRAVASCULAR COAGULATION [None]
  - EPISTAXIS [None]
  - GAZE PALSY [None]
  - GENERALISED OEDEMA [None]
  - GRAND MAL CONVULSION [None]
  - HAEMATEMESIS [None]
  - HAEMATURIA [None]
  - HEADACHE [None]
  - HYPERTENSION [None]
  - OEDEMA [None]
  - OLIGURIA [None]
  - OXYGEN SATURATION ABNORMAL [None]
  - PAIN [None]
  - PLEURAL EFFUSION [None]
  - PURPURA [None]
  - TOXIC INDUCED ENCEPHALOPATHY [None]
  - VISION BLURRED [None]
